FAERS Safety Report 19419480 (Version 1)
Quarter: 2021Q2

REPORT INFORMATION
  Report Type: Spontaneous
  Country: NO (occurrence: NO)
  Receive Date: 20210615
  Receipt Date: 20210615
  Transmission Date: 20210717
  Serious: Yes (Life-Threatening, Hospitalization)
  Sender: FDA-Public Use
  Company Number: NO-ROCHE-2849087

PATIENT
  Age: 58 Year
  Sex: Male
  Weight: 120 kg

DRUGS (2)
  1. OMNIC [Concomitant]
     Active Substance: TAMSULOSIN HYDROCHLORIDE
     Route: 048
  2. ROACTEMRA [Suspect]
     Active Substance: TOCILIZUMAB
     Indication: COVID-19
     Dosage: MOST RECENT DOSE ON 04/MAY/2021
     Route: 042
     Dates: start: 20210504

REACTIONS (1)
  - Large intestine perforation [Recovering/Resolving]
